FAERS Safety Report 9103424 (Version 1)
Quarter: 2013Q1

REPORT INFORMATION
  Report Type: Spontaneous
  Country: US (occurrence: US)
  Receive Date: 20130219
  Receipt Date: 20130219
  Transmission Date: 20140127
  Serious: Yes (Other)
  Sender: FDA-Public Use
  Company Number: US-PFIZER INC-2013039132

PATIENT
  Age: 44 Year
  Sex: Female
  Weight: 71.66 kg

DRUGS (4)
  1. LYRICA [Suspect]
     Indication: NERVE INJURY
     Dosage: 300 MG, 2X/DAY
     Route: 048
     Dates: start: 2009, end: 201301
  2. GABAPENTIN [Suspect]
     Indication: NERVE INJURY
     Dosage: 300 MG, 2X/DAY
     Route: 048
     Dates: start: 20130111, end: 20130114
  3. VALIUM [Concomitant]
     Indication: DEPRESSION
     Dosage: UNK, 3X/DAY
  4. LOSARTAN [Concomitant]
     Dosage: UNK

REACTIONS (6)
  - Peripheral nerve injury [Unknown]
  - Paraesthesia [Unknown]
  - Pain in extremity [Unknown]
  - Nausea [Unknown]
  - Malaise [Unknown]
  - Vomiting [Unknown]
